FAERS Safety Report 7377368-X (Version None)
Quarter: 2011Q1

REPORT INFORMATION
  Report Type: 
  Country: None (occurrence: None)
  Receive Date: 20110328
  Receipt Date: 20110323
  Transmission Date: 20110831
  Serious: Yes (Other)
  Sender: FDA-Public Use
  Company Number: US-PFIZER INC-2011065062

PATIENT
  Sex: Male
  Weight: 77 kg

DRUGS (1)
  1. ZOLOFT [Suspect]
     Dosage: 50 MG, DAILY
     Route: 048
     Dates: start: 20100101

REACTIONS (3)
  - TREMOR [None]
  - MEDICATION ERROR [None]
  - ANXIETY [None]
